FAERS Safety Report 5981647-8 (Version None)
Quarter: 2008Q4

REPORT INFORMATION
  Report Type: 
  Country: None (occurrence: None)
  Receive Date: 20081205
  Receipt Date: 20081128
  Transmission Date: 20090506
  Serious: Yes (Other)
  Sender: FDA-Public Use
  Company Number: MX-ASTRAZENECA-2008UW26748

PATIENT
  Age: 39 Year
  Sex: Male
  Weight: 80 kg

DRUGS (4)
  1. CRESTOR [Suspect]
     Indication: HYPERTRIGLYCERIDAEMIA
     Route: 048
     Dates: start: 20040101
  2. NEXIUM [Concomitant]
     Indication: GASTRITIS EROSIVE
     Route: 048
     Dates: start: 20040801
  3. ATACAND PLUS [Concomitant]
     Indication: HYPERTENSION
     Route: 048
     Dates: start: 20040801
  4. MODURETIC 5-50 [Concomitant]
     Indication: FLUID RETENTION
     Route: 048
     Dates: start: 20040301

REACTIONS (3)
  - MUSCLE STRAIN [None]
  - TENDON RUPTURE [None]
  - TENDONITIS [None]
